FAERS Safety Report 6787985-3 (Version None)
Quarter: 2010Q2

REPORT INFORMATION
  Report Type: 
  Country: None (occurrence: None)
  Receive Date: 20100623
  Receipt Date: 20071210
  Transmission Date: 20101027
  Serious: No
  Sender: FDA-Public Use
  Company Number: US-PFIZER INC-2007104400

PATIENT
  Sex: Female
  Weight: 84.09 kg

DRUGS (5)
  1. PROVERA [Suspect]
     Indication: CONTRACEPTION
     Route: 048
     Dates: start: 20071204, end: 20071208
  2. PROVERA [Suspect]
     Indication: MENSTRUATION IRREGULAR
  3. TYLENOL [Concomitant]
  4. VITAMINS [Concomitant]
  5. ORLISTAT [Concomitant]
     Indication: WEIGHT DECREASED

REACTIONS (4)
  - BREAST SWELLING [None]
  - BREAST TENDERNESS [None]
  - PREGNANCY TEST POSITIVE [None]
  - VAGINAL HAEMORRHAGE [None]
